FAERS Safety Report 7092154-6 (Version None)
Quarter: 2010Q4

REPORT INFORMATION
  Report Type: 
  Country: None (occurrence: None)
  Receive Date: 20101029
  Receipt Date: 20101013
  Transmission Date: 20110411
  Serious: Yes (Death, Life-Threatening, Hospitalization, Other)
  Sender: FDA-Public Use
  Company Number: 2010003909

PATIENT
  Age: 89 Year
  Sex: Male
  Weight: 70 kg

DRUGS (11)
  1. ERLOTINIB HYDROCHLORIDE [Suspect]
     Indication: NON-SMALL CELL LUNG CANCER
     Dosage: (150 MG,QD),ORAL
     Route: 048
     Dates: start: 20081024, end: 20081201
  2. AMLODIPINE [Concomitant]
  3. PRAVASTATIN [Concomitant]
  4. ENALAPRIL MALEATE [Concomitant]
  5. ALOSENN (ALOSENN) [Concomitant]
  6. APRINDINE HYDROCHLORIDE (APRINDINE HYDROCHLORIDE) [Concomitant]
  7. ASPIRIN [Concomitant]
  8. LOPERAMIDE HCL [Concomitant]
  9. TIMOLOL MALEATE [Concomitant]
  10. TRUSOPT [Concomitant]
  11. HYALEIN (HYALURONATE SODIUM) [Concomitant]

REACTIONS (16)
  - ACNE PUSTULAR [None]
  - BACTERIAL INFECTION [None]
  - BLOOD BILIRUBIN INCREASED [None]
  - DIARRHOEA [None]
  - HEPATIC FUNCTION ABNORMAL [None]
  - INTERSTITIAL LUNG DISEASE [None]
  - MALIGNANT NEOPLASM PROGRESSION [None]
  - MULTI-ORGAN FAILURE [None]
  - NON-SMALL CELL LUNG CANCER [None]
  - PLATELET COUNT DECREASED [None]
  - RENAL IMPAIRMENT [None]
  - SEPSIS [None]
  - SEPTIC SHOCK [None]
  - SKIN INFECTION [None]
  - STOMATITIS [None]
  - TOXIC SKIN ERUPTION [None]
